FAERS Safety Report 16837351 (Version 1)
Quarter: 2019Q3

REPORT INFORMATION
  Report Type: Report from Study
  Country: None (occurrence: BG)
  Receive Date: 20190923
  Receipt Date: 20190923
  Transmission Date: 20191005
  Serious: Yes (Death)
  Sender: FDA-Public Use
  Company Number: BG-ABBVIE-19K-022-2934589-00

PATIENT
  Sex: Female

DRUGS (1)
  1. DUODOPA [Suspect]
     Active Substance: CARBIDOPA\LEVODOPA
     Indication: PARKINSON^S DISEASE
     Dosage: MD- 6.5 ML,CR- 2.2 ML/H,EX- 1 ML
     Route: 050
     Dates: start: 20140527, end: 20190916

REACTIONS (1)
  - Angiopathy [Fatal]

NARRATIVE: CASE EVENT DATE: 2019
